FAERS Safety Report 5299240-1 (Version None)
Quarter: 2007Q2

REPORT INFORMATION
  Report Type: 
  Country: None (occurrence: None)
  Receive Date: 20070411
  Receipt Date: 20070411
  Transmission Date: 20071010
  Serious: Yes (Hospitalization)
  Sender: FDA-Public Use
  Company Number: None

PATIENT
  Age: 77 Year
  Sex: Male

DRUGS (11)
  1. ASPIRIN [Suspect]
     Dosage: 325 MG  DAILY
  2. IBUPROFEN [Suspect]
     Dosage: OTC (DOESN'T REMEMBER)
  3. OMEPRAZOLE [Concomitant]
  4. RAMIPRIL [Concomitant]
  5. SIMVASTATIN [Concomitant]
  6. LASIX [Concomitant]
  7. METOPROLOL SUCCINATE [Concomitant]
  8. POTASSIUM CHLORIDE [Concomitant]
  9. ALBUTEROL [Concomitant]
  10. ATROVENT [Concomitant]
  11. DIGOXIN [Concomitant]

REACTIONS (2)
  - GASTROINTESTINAL HAEMORRHAGE [None]
  - HYPOTENSION [None]
